FAERS Safety Report 13644451 (Version 1)
Quarter: 2017Q2

REPORT INFORMATION
  Report Type: Spontaneous
  Country: US (occurrence: US)
  Receive Date: 20170612
  Receipt Date: 20170612
  Transmission Date: 20170830
  Serious: No
  Sender: FDA-Public Use
  Company Number: US-ROCHE-1380500

PATIENT
  Sex: Female

DRUGS (8)
  1. ECOTRIN [Concomitant]
     Active Substance: ASPIRIN
  2. XELODA [Suspect]
     Active Substance: CAPECITABINE
     Indication: PRODUCT USED FOR UNKNOWN INDICATION
     Route: 048
     Dates: start: 20140115
  3. EXEMESTANE. [Concomitant]
     Active Substance: EXEMESTANE
     Route: 065
  4. FENTANYL. [Concomitant]
     Active Substance: FENTANYL
  5. HYDROCHLOROTHIAZIDE. [Concomitant]
     Active Substance: HYDROCHLOROTHIAZIDE
  6. VALIUM [Concomitant]
     Active Substance: DIAZEPAM
     Route: 065
  7. SOMA [Concomitant]
     Active Substance: CARISOPRODOL
  8. TRAMADOL. [Concomitant]
     Active Substance: TRAMADOL

REACTIONS (2)
  - Oral candidiasis [Unknown]
  - Fatigue [Unknown]
